FAERS Safety Report 17822096 (Version 9)
Quarter: 2025Q3

REPORT INFORMATION
  Report Type: Report from Study
  Country: MX (occurrence: MX)
  Receive Date: 20200526
  Receipt Date: 20250812
  Transmission Date: 20251021
  Serious: Yes (Life-Threatening, Hospitalization, Other)
  Sender: NOVARTIS
  Company Number: None

PATIENT
  Age: 36 Year
  Sex: Female
  Weight: 107 kg

DRUGS (5)
  1. TASIGNA [Suspect]
     Active Substance: NILOTINIB
     Indication: Chronic myeloid leukaemia
     Dosage: 400 MG, Q12H
     Route: 048
     Dates: start: 20200415
  2. TASIGNA [Suspect]
     Active Substance: NILOTINIB
     Route: 048
  3. TASIGNA [Suspect]
     Active Substance: NILOTINIB
     Dosage: 2 DOSAGE FORM, BID ( 2 CAPSULES IN THE MORNING AND 2 CAPSULES IN THE NIGHT)
     Route: 048
  4. TASIGNA [Suspect]
     Active Substance: NILOTINIB
     Dosage: 4 DOSAGE FORM, QD
     Route: 048
     Dates: start: 2020
  5. TASIGNA [Suspect]
     Active Substance: NILOTINIB
     Dosage: 2 DOSAGE FORM (200 MG, BID)
     Route: 048
     Dates: start: 20220201, end: 20250807

REACTIONS (37)
  - Haemoglobin abnormal [Recovered/Resolved]
  - Renal failure [Recovered/Resolved]
  - Kidney infection [Recovered/Resolved]
  - Coronavirus infection [Unknown]
  - Abdominal pain [Recovering/Resolving]
  - Renal pain [Recovered/Resolved]
  - Back pain [Recovered/Resolved]
  - Leukaemia [Unknown]
  - Syncope [Recovered/Resolved]
  - Diabetes mellitus [Recovering/Resolving]
  - Blood triglycerides abnormal [Not Recovered/Not Resolved]
  - Blood glucose abnormal [Not Recovered/Not Resolved]
  - Abdominal discomfort [Not Recovered/Not Resolved]
  - Anxiety [Unknown]
  - Vomiting [Recovering/Resolving]
  - Decreased appetite [Unknown]
  - Insomnia [Recovering/Resolving]
  - Mood altered [Unknown]
  - Illness [Unknown]
  - Weight decreased [Recovering/Resolving]
  - Nausea [Unknown]
  - Headache [Not Recovered/Not Resolved]
  - Stress [Unknown]
  - Myalgia [Not Recovered/Not Resolved]
  - Inflammation [Unknown]
  - Infection [Unknown]
  - Platelet count increased [Unknown]
  - Malaise [Recovered/Resolved]
  - Anaemia [Recovering/Resolving]
  - Mobility decreased [Recovered/Resolved]
  - Dizziness [Recovered/Resolved]
  - Vision blurred [Recovered/Resolved]
  - Hypertension [Recovering/Resolving]
  - Anuria [Unknown]
  - Depression [Unknown]
  - Multiple allergies [Unknown]
  - Mental disorder [Unknown]

NARRATIVE: CASE EVENT DATE: 20200520
